FAERS Safety Report 9741785 (Version 3)
Quarter: 2014Q1

REPORT INFORMATION
  Report Type: Report from Study
  Country: US (occurrence: US)
  Receive Date: 20131210
  Receipt Date: 20140226
  Transmission Date: 20141002
  Serious: Yes (Hospitalization)
  Sender: FDA-Public Use
  Company Number: US-ROCHE-1312756

PATIENT
  Age: 66 Year
  Sex: Male
  Weight: 55.3 kg

DRUGS (13)
  1. ERLOTINIB [Suspect]
     Indication: HEPATOCELLULAR CARCINOMA
     Dosage: LAST DOSE PRIOR TO SAE :22/NOV/2013, LAST DOSE PRIOR TO SAE :14/DEC/2013 (GI BLEED).?DAILY X 28 DAYS
     Route: 048
     Dates: start: 20130402
  2. BEVACIZUMAB [Suspect]
     Indication: HEPATOCELLULAR CARCINOMA
     Dosage: LAST DOSE PRIOR TO SAE :19/NOV/2013
     Route: 042
     Dates: start: 20130402
  3. TENOFOVIR [Concomitant]
     Route: 065
     Dates: start: 20111212
  4. INSULIN 30/70 [Concomitant]
     Route: 065
     Dates: start: 20130401
  5. LASIX [Concomitant]
     Route: 065
     Dates: start: 20130219
  6. ALDACTONE (UNITED STATES) [Concomitant]
     Route: 065
     Dates: start: 20121015
  7. PROPRANOLOL [Concomitant]
     Route: 065
     Dates: start: 20121015
  8. LUMIGAN [Concomitant]
  9. LEVOBUNOLOL EYE DROPS [Concomitant]
  10. PREDNISOLONE EYE DROPS [Concomitant]
  11. POLYVINYL ALCOHOL [Concomitant]
  12. LACTULOSE [Concomitant]
     Route: 065
     Dates: start: 20121224
  13. DOXYCYCLINE HYCLATE [Concomitant]
     Route: 065
     Dates: start: 20130419

REACTIONS (3)
  - Haemorrhage [Unknown]
  - Varices oesophageal [Unknown]
  - Gastrointestinal haemorrhage [Unknown]
